FAERS Safety Report 5564333-8 (Version None)
Quarter: 2007Q4

REPORT INFORMATION
  Report Type: 
  Country: None (occurrence: None)
  Receive Date: 20071214
  Receipt Date: 20071214
  Transmission Date: 20080405
  Serious: Yes (Hospitalization)
  Sender: FDA-Public Use
  Company Number: None

PATIENT
  Sex: Male
  Weight: 93.6 kg

DRUGS (3)
  1. TEMOZOLOMIDE [Suspect]
     Dosage: 4950 MG
  2. BACTRIM [Concomitant]
  3. VALACYCLOVIR [Concomitant]

REACTIONS (11)
  - ANAEMIA [None]
  - ASPIRATION [None]
  - BLOOD FIBRINOGEN INCREASED [None]
  - EPISTAXIS [None]
  - FIBRIN D DIMER INCREASED [None]
  - HAEMOGLOBIN DECREASED [None]
  - HAEMOPTYSIS [None]
  - PULMONARY EMBOLISM [None]
  - PULMONARY HAEMORRHAGE [None]
  - RASH [None]
  - THROMBOCYTOPENIA [None]
